FAERS Safety Report 9500521 (Version 1)
Quarter: 2013Q1

REPORT INFORMATION
  Report Type: Spontaneous
  Country: US (occurrence: None)
  Receive Date: 20130107
  Receipt Date: 20130107
  Transmission Date: 20140127
  Serious: Yes (Other)
  Sender: FDA-Public Use
  Company Number: PHEH2012US019736

PATIENT
  Age: 47 Year
  Sex: Female
  Weight: 81.2 kg

DRUGS (6)
  1. GILENYA [Suspect]
     Indication: RELAPSING-REMITTING MULTIPLE SCLEROSIS
     Route: 048
     Dates: start: 20121002, end: 20121003
  2. DIAZEPAM (DIAZEPAM0 [Concomitant]
  3. DIPHENHYDRAMINE (DIPHENHYDRAMINE) [Concomitant]
  4. FLUOXETIN (FLUOXETINE HYDROCHLORIDE) [Concomitant]
  5. AVONEX (INTERFERON BETA-1A) [Concomitant]
  6. ANTIDEPRESSANTS (NO INGREDIENTS/SUBSTANCES) [Concomitant]

REACTIONS (4)
  - Sinus bradycardia [None]
  - Electrocardiogram T wave abnormal [None]
  - Heart rate decreased [None]
  - Chest discomfort [None]
